FAERS Safety Report 8469953-9 (Version None)
Quarter: 2012Q2

REPORT INFORMATION
  Report Type: 
  Country: None (occurrence: None)
  Receive Date: 20120627
  Receipt Date: 20120619
  Transmission Date: 20120825
  Serious: No
  Sender: FDA-Public Use
  Company Number: US-BIOGENIDEC-2011BI019059

PATIENT
  Age: 59 Year
  Sex: Female

DRUGS (4)
  1. LAMICTAL [Concomitant]
     Indication: FIBROMYALGIA
     Dates: start: 20100101
  2. TYSABRI [Suspect]
     Indication: MULTIPLE SCLEROSIS
     Route: 042
     Dates: start: 20110329
  3. SOMA [Concomitant]
     Indication: MUSCLE SPASMS
  4. ATIVAN [Concomitant]
     Indication: MUSCLE SPASMS

REACTIONS (22)
  - INSOMNIA [None]
  - BALANCE DISORDER [None]
  - PARAESTHESIA [None]
  - HYPOAESTHESIA [None]
  - MALAISE [None]
  - NAUSEA [None]
  - CONFUSIONAL STATE [None]
  - REPETITIVE SPEECH [None]
  - MEMORY IMPAIRMENT [None]
  - MYALGIA [None]
  - DIPLOPIA [None]
  - COGNITIVE DISORDER [None]
  - FIBROMYALGIA [None]
  - PAIN IN EXTREMITY [None]
  - CHEST DISCOMFORT [None]
  - INTERVERTEBRAL DISC PROTRUSION [None]
  - GAIT DISTURBANCE [None]
  - MUSCLE SPASMS [None]
  - FATIGUE [None]
  - HEADACHE [None]
  - VISION BLURRED [None]
  - HEMIPARESIS [None]
